FAERS Safety Report 13674894 (Version 3)
Quarter: 2018Q2

REPORT INFORMATION
  Report Type: Spontaneous
  Country: US (occurrence: US)
  Receive Date: 20170621
  Receipt Date: 20180523
  Transmission Date: 20180711
  Serious: No
  Sender: FDA-Public Use
  Company Number: US-PFIZER INC-2017267190

PATIENT
  Age: 74 Year
  Sex: Female
  Weight: 77.9 kg

DRUGS (1)
  1. LATANOPROST. [Suspect]
     Active Substance: LATANOPROST
     Indication: GLAUCOMA
     Dosage: UNK (0.005% / 2.5ML)

REACTIONS (3)
  - Eye irritation [Unknown]
  - Ocular hyperaemia [Unknown]
  - Drug ineffective [Unknown]
